FAERS Safety Report 10176154 (Version 1)
Quarter: 2014Q2

REPORT INFORMATION
  Report Type: Spontaneous
  Country: IN (occurrence: IN)
  Receive Date: 20140516
  Receipt Date: 20140516
  Transmission Date: 20141212
  Serious: Yes (Other)
  Sender: FDA-Public Use
  Company Number: IN-BAUSCH-BL-2014-002414

PATIENT
  Age: 62 Year
  Sex: Male

DRUGS (4)
  1. CYCLOPENTOLATE HYDROCHLORIDE [Suspect]
     Indication: PUPIL DILATION PROCEDURE
     Route: 047
  2. TROPICAMIDE [Concomitant]
     Indication: PUPIL DILATION PROCEDURE
  3. PHENYLEPHRINE [Concomitant]
     Indication: PUPIL DILATION PROCEDURE
  4. FLURBIPROFEN [Concomitant]
     Indication: PUPIL DILATION PROCEDURE

REACTIONS (2)
  - Dyskinesia [Unknown]
  - Amnesia [Unknown]
